FAERS Safety Report 6314287-1 (Version None)
Quarter: 2009Q3

REPORT INFORMATION
  Report Type: 
  Country: None (occurrence: None)
  Receive Date: 20090817
  Receipt Date: 20090805
  Transmission Date: 20100115
  Serious: Yes (Hospitalization)
  Sender: FDA-Public Use
  Company Number: CERZ-1000788

PATIENT
  Age: 24 Year
  Sex: Male
  Weight: 65.4 kg

DRUGS (2)
  1. CEREZYME [Suspect]
     Indication: GAUCHER'S DISEASE
     Dosage: 400 U, Q2W, INTRAVENOUS
     Route: 042
     Dates: start: 20050728
  2. SODIUM CHLORIDE 0.9% [Concomitant]

REACTIONS (4)
  - AIR EMBOLISM [None]
  - BLOOD PRESSURE DIASTOLIC DECREASED [None]
  - FATIGUE [None]
  - MEDICATION ERROR [None]
